FAERS Safety Report 7258754-5 (Version None)
Quarter: 2011Q1

REPORT INFORMATION
  Report Type: 
  Country: None (occurrence: None)
  Receive Date: 20110129
  Receipt Date: 20100514
  Transmission Date: 20110831
  Serious: Yes (Other)
  Sender: FDA-Public Use
  Company Number: US-ABBOTT-10P-163-0645574-00

PATIENT
  Sex: Female

DRUGS (2)
  1. HUMIRA [Suspect]
     Indication: CROHN'S DISEASE
     Route: 058
     Dates: start: 20070101, end: 20080101
  2. HUMIRA [Suspect]
     Dates: start: 20080101, end: 20090301

REACTIONS (6)
  - RASH [None]
  - PYODERMA GANGRENOSUM [None]
  - WHITE BLOOD CELL COUNT INCREASED [None]
  - ARTHRITIS [None]
  - ABDOMINAL PAIN [None]
  - ABDOMINAL DISTENSION [None]
